FAERS Safety Report 8829756 (Version 1)
Quarter: 2012Q4

REPORT INFORMATION
  Report Type: Spontaneous
  Country: MY (occurrence: None)
  Receive Date: 20121004
  Receipt Date: 20121004
  Transmission Date: 20130627
  Serious: Yes (Other)
  Sender: FDA-Public Use
  Company Number: 2012P1060137

PATIENT
  Age: 28 Year
  Sex: Female

DRUGS (4)
  1. ZINACEF [Suspect]
     Indication: PROPHYLAXIS
     Route: 042
  2. ZINACEF [Suspect]
     Indication: SURGERY
     Route: 042
  3. OXYTOCIN [Concomitant]
  4. ODANSETRON HYDROCHLORIDE [Concomitant]

REACTIONS (4)
  - Angioedema [None]
  - Dyspnoea [None]
  - Pruritus [None]
  - Nausea [None]
